FAERS Safety Report 15304547 (Version 1)
Quarter: 2018Q3

REPORT INFORMATION
  Report Type: Spontaneous
  Country: US (occurrence: US)
  Receive Date: 20180809
  Receipt Date: 20180809
  Transmission Date: 20181010
  Serious: No
  Sender: FDA-Public Use
  Company Number: None

PATIENT
  Age: 65 Year
  Sex: Male

DRUGS (1)
  1. VOSEVI [Suspect]
     Active Substance: SOFOSBUVIR\VELPATASVIR\VOXILAPREVIR
     Indication: HEPATITIS C
     Dosage: TAKE 1 TABLET DAILY BY MOUTH
     Route: 048
     Dates: start: 20180502, end: 20180802

REACTIONS (1)
  - Fatigue [None]

NARRATIVE: CASE EVENT DATE: 20180723
